FAERS Safety Report 7318650-1 (Version None)
Quarter: 2011Q1

REPORT INFORMATION
  Report Type: 
  Country: None (occurrence: None)
  Receive Date: 20110228
  Receipt Date: 20110223
  Transmission Date: 20110831
  Serious: Yes (Hospitalization)
  Sender: FDA-Public Use
  Company Number: IT-BRISTOL-MYERS SQUIBB COMPANY-15568546

PATIENT
  Sex: Male

DRUGS (1)
  1. ETOPOSIDE [Suspect]

REACTIONS (3)
  - HEADACHE [None]
  - ORAL PAIN [None]
  - OROPHARYNGEAL PAIN [None]
